FAERS Safety Report 13904429 (Version 7)
Quarter: 2017Q4

REPORT INFORMATION
  Report Type: Report from Study
  Country: US (occurrence: US)
  Receive Date: 20170825
  Receipt Date: 20171109
  Transmission Date: 20180320
  Serious: Yes (Hospitalization, Other)
  Sender: FDA-Public Use
  Company Number: US-GILEAD-2017-0283114

PATIENT
  Age: 36 Year
  Sex: Female

DRUGS (5)
  1. REMODULIN [Concomitant]
     Active Substance: TREPROSTINIL
  2. AMBRISENTAN [Suspect]
     Active Substance: AMBRISENTAN
     Indication: PRODUCT USED FOR UNKNOWN INDICATION
     Dosage: 10 MG, QD
     Route: 065
     Dates: start: 20120705
  3. WARFARIN [Concomitant]
     Active Substance: WARFARIN
  4. AMLODIPINE [Concomitant]
     Active Substance: AMLODIPINE BESYLATE
  5. ADCIRCA [Concomitant]
     Active Substance: TADALAFIL

REACTIONS (10)
  - Dyspnoea [Unknown]
  - Cough [Not Recovered/Not Resolved]
  - Asthma [Unknown]
  - Malaise [Not Recovered/Not Resolved]
  - Dyspnoea [Unknown]
  - Device related infection [Unknown]
  - Chest pain [Unknown]
  - Pyrexia [Not Recovered/Not Resolved]
  - Oropharyngeal pain [Not Recovered/Not Resolved]
  - Dehydration [Unknown]

NARRATIVE: CASE EVENT DATE: 20170822
